FAERS Safety Report 6618150-8 (Version None)
Quarter: 2010Q1

REPORT INFORMATION
  Report Type: 
  Country: None (occurrence: None)
  Receive Date: 20100308
  Receipt Date: 20100222
  Transmission Date: 20100710
  Serious: Yes (Hospitalization)
  Sender: FDA-Public Use
  Company Number: US-PFIZER INC-2010023450

PATIENT
  Sex: Male

DRUGS (2)
  1. SUNITINIB MALATE [Suspect]
     Indication: METASTATIC NEOPLASM
     Dosage: 37.5 MG, 1X/DAY
     Route: 048
     Dates: end: 20080922
  2. AMG386 [Suspect]
     Indication: METASTATIC NEOPLASM
     Dosage: 3 MG/KG, WEEKLY
     Route: 042
     Dates: start: 20080619, end: 20080918

REACTIONS (3)
  - NEUTROPENIA [None]
  - PERIRECTAL ABSCESS [None]
  - PYREXIA [None]
